FAERS Safety Report 7625440-9 (Version None)
Quarter: 2011Q3

REPORT INFORMATION
  Report Type: 
  Country: None (occurrence: None)
  Receive Date: 20110721
  Receipt Date: 20110711
  Transmission Date: 20111222
  Serious: Yes (Other)
  Sender: FDA-Public Use
  Company Number: US-JNJFOC-20110704950

PATIENT
  Sex: Female
  Weight: 134.27 kg

DRUGS (6)
  1. TOPAMAX [Suspect]
     Indication: DEPRESSION
     Route: 048
     Dates: start: 20090101
  2. CELEXA [Concomitant]
     Indication: DEPRESSION
     Route: 048
  3. REMICADE [Suspect]
     Indication: COLITIS ULCERATIVE
     Route: 042
     Dates: start: 20110401
  4. KLONOPIN [Concomitant]
     Indication: DEPRESSION
     Route: 048
  5. LOTREL [Concomitant]
     Indication: HYPERTENSION
     Route: 048
  6. WELLBUTRIN XL [Concomitant]
     Indication: DEPRESSION
     Route: 048

REACTIONS (3)
  - FALL [None]
  - ARTHRITIS [None]
  - CONTUSION [None]
